FAERS Safety Report 24022377 (Version 1)
Quarter: 2024Q2

REPORT INFORMATION
  Report Type: Spontaneous
  Country: JP (occurrence: JP)
  Receive Date: 20240627
  Receipt Date: 20240627
  Transmission Date: 20240717
  Serious: No
  Sender: FDA-Public Use
  Company Number: JP-CHUGAI-2023046620

PATIENT
  Age: 8 Decade
  Sex: Female

DRUGS (2)
  1. ROZLYTREK [Suspect]
     Active Substance: ENTRECTINIB
     Indication: Non-small cell lung cancer
     Dosage: UNK
     Route: 065
     Dates: end: 202312
  2. ROZLYTREK [Suspect]
     Active Substance: ENTRECTINIB
     Dosage: UNK
     Route: 065
     Dates: start: 202312

REACTIONS (1)
  - Cognitive disorder [Recovered/Resolved]

NARRATIVE: CASE EVENT DATE: 20231201
